FAERS Safety Report 7339431-9 (Version None)
Quarter: 2011Q1

REPORT INFORMATION
  Report Type: 
  Country: None (occurrence: None)
  Receive Date: 20110308
  Receipt Date: 20101222
  Transmission Date: 20110831
  Serious: No
  Sender: FDA-Public Use
  Company Number: US-AMGEN-USASP2010010895

PATIENT
  Age: 81 Year
  Sex: Female

DRUGS (5)
  1. VITAMIN A [Concomitant]
  2. MAGNESIUM [Concomitant]
  3. VITAMIN E                          /00110501/ [Concomitant]
  4. PROLIA [Suspect]
     Indication: OSTEOPOROSIS
     Dates: start: 20101201
  5. CALCIUM [Concomitant]

REACTIONS (2)
  - FATIGUE [None]
  - ARTHRALGIA [None]
